FAERS Safety Report 12446551 (Version 1)
Quarter: 2016Q2

REPORT INFORMATION
  Report Type: Spontaneous
  Country: US (occurrence: None)
  Receive Date: 20160607
  Receipt Date: 20160607
  Transmission Date: 20160815
  Serious: No
  Sender: FDA-Public Use
  Company Number: None

PATIENT
  Age: 59 Year
  Sex: Male

DRUGS (1)
  1. HARVONI [Suspect]
     Active Substance: LEDIPASVIR\SOFOSBUVIR
     Indication: HEPATITIS C
     Dosage: HARVONI 90-400MG 1TQD ORAL
     Route: 048
     Dates: start: 20160524

REACTIONS (3)
  - Respiratory tract congestion [None]
  - Constipation [None]
  - Nasopharyngitis [None]

NARRATIVE: CASE EVENT DATE: 20160601
